FAERS Safety Report 11654675 (Version 6)
Quarter: 2016Q3

REPORT INFORMATION
  Report Type: Spontaneous
  Country: US (occurrence: US)
  Receive Date: 20151023
  Receipt Date: 20160815
  Transmission Date: 20161109
  Serious: Yes (Other)
  Sender: FDA-Public Use
  Company Number: US-PFIZER INC-2015343038

PATIENT
  Age: 72 Year
  Sex: Female
  Weight: 67.12 kg

DRUGS (20)
  1. IBRANCE [Suspect]
     Active Substance: PALBOCICLIB
     Dosage: 75 MG, CYCLIC (ONCE DAILY FOR 21 DAYS ON AND 14 DAYS OFF)
     Route: 048
     Dates: start: 20160122, end: 20160316
  2. MAGNESIUM [Concomitant]
     Active Substance: MAGNESIUM
     Dosage: 500 MG, UNK
     Route: 048
  3. MAG-OX [Concomitant]
     Active Substance: MAGNESIUM OXIDE
     Dosage: 400 MG, DAILY
     Route: 048
  4. IBRANCE [Suspect]
     Active Substance: PALBOCICLIB
     Indication: BREAST CANCER METASTATIC
     Dosage: 125 MG, CYCLIC (ONCE A DAY, FOR 21 DAYS ON AND 7 DAYS OFF)
     Route: 048
     Dates: start: 2015
  5. CASCARA SAGRADA /00143201/ [Concomitant]
     Active Substance: FRANGULA PURSHIANA BARK
     Dosage: 450 MG, DAILY
     Route: 048
  6. TRUSOPT [Concomitant]
     Active Substance: DORZOLAMIDE HYDROCHLORIDE
     Dosage: 1 GTT, 3X/DAY (2%, INSTILL 1 DROP INTO BOTH EYES)
  7. ZOMETA [Concomitant]
     Active Substance: ZOLEDRONIC ACID
     Indication: METASTASES TO BONE
     Dosage: UNK, MONTHLY
     Route: 042
     Dates: start: 2013
  8. ZINC [Concomitant]
     Active Substance: ZINC\ZINC CHLORIDE
     Dosage: 15 MG, DAILY
     Route: 048
  9. DRISDOL [Concomitant]
     Active Substance: ERGOCALCIFEROL
     Dosage: 50000 IU, WEEKLY
     Route: 048
  10. FEMARA [Concomitant]
     Active Substance: LETROZOLE
     Indication: BREAST CANCER
     Dosage: 2.5 MG, 1X/DAY (DAILY LATE)
     Route: 048
     Dates: start: 2013
  11. COMPAZINE [Concomitant]
     Active Substance: PROCHLORPERAZINE MALEATE
     Indication: VOMITING
  12. LORTAB [Concomitant]
     Active Substance: ACETAMINOPHEN\HYDROCODONE BITARTRATE
     Dosage: 1 DF, EVERY 4 HRS  (10-600MG EVERY 4 HOURS)
  13. TRAVATAN Z [Concomitant]
     Active Substance: TRAVOPROST
     Dosage: 0.004 %, 1X/DAY (0.004% AT BEDTIMES)
  14. CALCIUM [Concomitant]
     Active Substance: CALCIUM
     Dosage: UNK
     Route: 048
  15. VITAMIN D [Concomitant]
     Active Substance: CHOLECALCIFEROL
     Dosage: UNK
     Route: 048
  16. IBRANCE [Suspect]
     Active Substance: PALBOCICLIB
     Dosage: 75 MG, CYCLIC (ONCE DAILY FOR 3 WEEKS ON AND 1 WEEK OFF)
     Route: 048
     Dates: start: 20160331
  17. COMBIGAN [Concomitant]
     Active Substance: BRIMONIDINE TARTRATE\TIMOLOL MALEATE
     Dosage: 1 GTT, 2X/DAY (0.2-0.5% INSTILL 1 DROP INTO BOTH EYES)
  18. NORCO [Concomitant]
     Active Substance: ACETAMINOPHEN\HYDROCODONE BITARTRATE
     Dosage: 1 DF, EVERY 4 HOURS (AS NEEDED) (HYDROCODONE 5MG- ACETAMINOPHEN- 325MG)
     Route: 048
  19. COMPAZINE [Concomitant]
     Active Substance: PROCHLORPERAZINE MALEATE
     Indication: NAUSEA
     Dosage: 10 MG, AS NEEDED (EVERY 8 HOURS)
     Route: 048
  20. TOCOPHERYL [Concomitant]
     Dosage: 400 IU, DAILY
     Route: 048

REACTIONS (3)
  - Neutropenia [Unknown]
  - White blood cell count decreased [Recovered/Resolved]
  - Blood count abnormal [Recovered/Resolved]

NARRATIVE: CASE EVENT DATE: 20151002
